FAERS Safety Report 13674069 (Version 1)
Quarter: 2017Q2

REPORT INFORMATION
  Report Type: Spontaneous
  Country: US (occurrence: US)
  Receive Date: 20170620
  Receipt Date: 20170620
  Transmission Date: 20170830
  Serious: Yes (Life-Threatening)
  Sender: FDA-Public Use
  Company Number: None

PATIENT
  Age: 39 Year
  Sex: Female
  Weight: 80 kg

DRUGS (1)
  1. ALCOPHYLLEX COUGH SYRUBA [Suspect]
     Active Substance: AMMONIUM CHLORIDE\DIPHENHYDRAMINE\ETOFYLLINE\SODIUM CITRATE\THEOPHYLLINE
     Indication: COUGH
     Dosage: QUANTITY:200 TABLESPOON(S);?
     Route: 048

REACTIONS (2)
  - Asthenia [None]
  - Somnolence [None]

NARRATIVE: CASE EVENT DATE: 20170620
